FAERS Safety Report 10084308 (Version 1)
Quarter: 2014Q2

REPORT INFORMATION
  Report Type: Report from Study
  Country: US (occurrence: US)
  Receive Date: 20140417
  Receipt Date: 20140417
  Transmission Date: 20141212
  Serious: Yes (Other)
  Sender: FDA-Public Use
  Company Number: US-PURDUE-USA-2014-0112997

PATIENT
  Age: 45 Year
  Sex: Male

DRUGS (1)
  1. OXY CR TAB [Suspect]
     Indication: NECK INJURY
     Dosage: 80 MG, TID
     Route: 048

REACTIONS (2)
  - Fall [Unknown]
  - Cervical vertebral fracture [Unknown]
